FAERS Safety Report 4687283-8 (Version None)
Quarter: 2005Q2

REPORT INFORMATION
  Report Type: 
  Country: None (occurrence: None)
  Receive Date: 20050608
  Receipt Date: 20050526
  Transmission Date: 20051028
  Serious: Yes (Hospitalization, Other)
  Sender: FDA-Public Use
  Company Number: 2005080967

PATIENT
  Age: 70 Year
  Sex: Female
  Weight: 56.6996 kg

DRUGS (11)
  1. CELEBREX [Suspect]
     Indication: ARTHRITIS
     Dates: end: 20041001
  2. BEXTRA [Suspect]
     Indication: ARTHRITIS
     Dosage: 1 IN 1 D, ORAL
     Route: 048
  3. ANTIBIOTICS (ANTIBIOTICS) [Suspect]
     Indication: SINUSITIS
     Dates: start: 20050101
  4. PENICILLIN [Suspect]
     Indication: SINUSITIS
     Dates: start: 20050101
  5. TOPROL (METOPROLOL) [Concomitant]
  6. MAXZIDE [Concomitant]
  7. GLUCOSAMINE (GLUCOSAMINE) [Concomitant]
  8. VITAMINS (VITAMINS) [Concomitant]
  9. CALCIUM (CALCIUM) [Concomitant]
  10. VITAMIN E [Concomitant]
  11. VITAMIN C (VITAMIN C) [Concomitant]

REACTIONS (12)
  - ANAEMIA [None]
  - BLOOD PRESSURE INCREASED [None]
  - COLITIS [None]
  - HEADACHE [None]
  - NAUSEA [None]
  - NEOPLASM MALIGNANT [None]
  - ORAL INTAKE REDUCED [None]
  - ORAL PAIN [None]
  - SINUSITIS [None]
  - STOMACH DISCOMFORT [None]
  - STRESS [None]
  - TOOTH DISORDER [None]
